FAERS Safety Report 11631268 (Version 3)
Quarter: 2016Q1

REPORT INFORMATION
  Report Type: Spontaneous
  Country: US (occurrence: US)
  Receive Date: 20151014
  Receipt Date: 20160117
  Transmission Date: 20160525
  Serious: No
  Sender: FDA-Public Use
  Company Number: US-AMGEN-USASP2015106795

PATIENT
  Age: 67 Year
  Sex: Female

DRUGS (1)
  1. ENBREL [Suspect]
     Active Substance: ETANERCEPT
     Indication: RHEUMATOID ARTHRITIS
     Dosage: UNK
     Route: 065
     Dates: start: 2005

REACTIONS (5)
  - Device issue [Unknown]
  - Visual impairment [Unknown]
  - Drug dose omission [Unknown]
  - Depressed mood [Unknown]
  - Amnesia [Unknown]

NARRATIVE: CASE EVENT DATE: 201510
